FAERS Safety Report 8104392-1 (Version None)
Quarter: 2011Q4

REPORT INFORMATION
  Report Type: 
  Country: None (occurrence: None)
  Receive Date: 20111222
  Receipt Date: 20110906
  Transmission Date: 20120403
  Serious: Yes (Hospitalization)
  Sender: FDA-Public Use
  Company Number: UTC-009652

PATIENT
  Age: 53 Year
  Sex: Female
  Weight: 69.5 kg

DRUGS (5)
  1. TRACLEER [Concomitant]
  2. REVATIO [Concomitant]
  3. DIURETICS (DIURETICS) [Concomitant]
  4. TYVASO [Suspect]
     Indication: COR PULMONALE CHRONIC
     Dosage: 216 MCG (54 MCG, 4 IN 1 D),INHALATION
     Route: 055
     Dates: start: 20091127
  5. OXYGEN (OXYGEN) [Concomitant]

REACTIONS (4)
  - HAEMORRHAGIC ANAEMIA [None]
  - THROMBOCYTOPENIA [None]
  - GASTRIC VARICES HAEMORRHAGE [None]
  - PORTAL HYPERTENSION [None]
